FAERS Safety Report 23176384 (Version 4)
Quarter: 2024Q2

REPORT INFORMATION
  Report Type: Spontaneous
  Country: GB (occurrence: GB)
  Receive Date: 20231113
  Receipt Date: 20240612
  Transmission Date: 20240716
  Serious: Yes (Other)
  Sender: FDA-Public Use
  Company Number: GB-MYLANLABS-2023M1116047

PATIENT
  Age: 33 Year
  Sex: Male

DRUGS (1)
  1. CLOZARIL [Suspect]
     Active Substance: CLOZAPINE
     Indication: Schizophrenia
     Dosage: 175 MILLIGRAM, QD (ON)
     Route: 048
     Dates: start: 20140415, end: 20231031

REACTIONS (8)
  - Suicidal ideation [Not Recovered/Not Resolved]
  - Malaise [Recovering/Resolving]
  - Eosinophil count decreased [Not Recovered/Not Resolved]
  - Lethargy [Unknown]
  - White blood cell count decreased [Recovered/Resolved]
  - Platelet count decreased [Recovered/Resolved]
  - Body temperature increased [Recovered/Resolved]
  - Antipsychotic drug level decreased [Unknown]

NARRATIVE: CASE EVENT DATE: 20231030
